FAERS Safety Report 6136767-4 (Version None)
Quarter: 2009Q1

REPORT INFORMATION
  Report Type: 
  Country: None (occurrence: None)
  Receive Date: 20090325
  Receipt Date: 20090316
  Transmission Date: 20090719
  Serious: Yes (Hospitalization)
  Sender: FDA-Public Use
  Company Number: 2009SP002998

PATIENT
  Age: 54 Year
  Sex: Male
  Weight: 60.6913 kg

DRUGS (7)
  1. PEG-INTRON [Suspect]
     Indication: HEPATITIS C
     Dosage: 96 MCG; QW; SC
     Route: 058
  2. REBETOL [Suspect]
     Indication: HEPATITIS C
     Dosage: 400 MG; BID; PO
     Route: 048
  3. TAMSULOSIN HCL [Concomitant]
  4. ASPIRIN [Concomitant]
  5. COSYNTROPIN W/MANNITOL [Concomitant]
  6. DEXTROSE 5% [Concomitant]
  7. OMEPRAZOLE [Concomitant]

REACTIONS (17)
  - ANAEMIA [None]
  - BURNING SENSATION [None]
  - DEHYDRATION [None]
  - DIARRHOEA [None]
  - DYSPNOEA [None]
  - FATIGUE [None]
  - GASTROENTERITIS [None]
  - HYPERKALAEMIA [None]
  - HYPERTROPHIC CARDIOMYOPATHY [None]
  - HYPOKALAEMIA [None]
  - HYPOPHAGIA [None]
  - MUSCULAR WEAKNESS [None]
  - NEUTROPENIA [None]
  - ORTHOSTATIC HYPOTENSION [None]
  - PRODUCTIVE COUGH [None]
  - SOMNOLENCE [None]
  - THROMBOCYTOPENIA [None]
